FAERS Safety Report 24732779 (Version 3)
Quarter: 2025Q4

REPORT INFORMATION
  Report Type: Spontaneous
  Country: EU (occurrence: EU)
  Receive Date: 20241213
  Receipt Date: 20251110
  Transmission Date: 20260118
  Serious: Yes (Congenital Anomaly, Other)
  Sender: LUNDBECK
  Company Number: EU-LUNDBECK-DKLU4008110

PATIENT
  Age: 35 Year
  Sex: Female

DRUGS (5)
  1. VYEPTI [Suspect]
     Active Substance: EPTINEZUMAB-JJMR
     Indication: Migraine
     Dosage: 100 MILLIGRAM
     Route: 041
     Dates: start: 20240207
  2. SUMATRIPTAN [Suspect]
     Active Substance: SUMATRIPTAN
     Indication: Migraine
     Dosage: 1 DOSAGE FORM
     Dates: start: 20240627
  3. PROPRANOLOL HYDROCHLORIDE [Suspect]
     Active Substance: PROPRANOLOL HYDROCHLORIDE
     Indication: Migraine
     Dates: start: 20240627
  4. LEVOTHYROXINE [Concomitant]
     Active Substance: LEVOTHYROXINE
     Indication: Product used for unknown indication
  5. VENLAFAXINE [Concomitant]
     Active Substance: VENLAFAXINE HYDROCHLORIDE
     Indication: Product used for unknown indication

REACTIONS (7)
  - Foetal death [Not Recovered/Not Resolved]
  - Foetal growth restriction [Not Recovered/Not Resolved]
  - Oligohydramnios [Unknown]
  - Placental disorder [Unknown]
  - Abortion spontaneous [Unknown]
  - Amniotic cavity infection [Unknown]
  - Pregnancy [Unknown]

NARRATIVE: CASE EVENT DATE: 20240418
